FAERS Safety Report 10896334 (Version 1)
Quarter: 2015Q1

REPORT INFORMATION
  Report Type: Spontaneous
  Country: US (occurrence: None)
  Receive Date: 20150302
  Receipt Date: 20150302
  Transmission Date: 20150721
  Serious: No
  Sender: FDA-Public Use
  Company Number: None

PATIENT
  Age: 57 Year
  Sex: Female

DRUGS (1)
  1. SPRYCEL [Suspect]
     Active Substance: DASATINIB
     Dates: start: 20141030, end: 20141218

REACTIONS (4)
  - White blood cell count increased [None]
  - Platelet count increased [None]
  - Monocyte count increased [None]
  - Neutrophil count increased [None]

NARRATIVE: CASE EVENT DATE: 20141130
